FAERS Safety Report 16269552 (Version 1)
Quarter: 2019Q2

REPORT INFORMATION
  Report Type: Spontaneous
  Country: US (occurrence: US)
  Receive Date: 20190503
  Receipt Date: 20190503
  Transmission Date: 20190711
  Serious: No
  Sender: FDA-Public Use
  Company Number: US-PFIZER INC-2019183805

PATIENT
  Age: 13 Year
  Sex: Female

DRUGS (2)
  1. GENOTROPIN [Suspect]
     Active Substance: SOMATROPIN
     Dosage: 0.9 MG, DAILY
     Dates: start: 20180623
  2. GENOTROPIN [Suspect]
     Active Substance: SOMATROPIN
     Dosage: 0.8 MG, DAILY
     Dates: start: 201805

REACTIONS (6)
  - Acne [Unknown]
  - Headache [Unknown]
  - Thyroid function test abnormal [Unknown]
  - Dizziness [Unknown]
  - Blood triglycerides increased [Unknown]
  - Insulin-like growth factor increased [Unknown]
